FAERS Safety Report 14304833 (Version 1)
Quarter: 2017Q4

REPORT INFORMATION
  Report Type: Spontaneous
  Country: ID (occurrence: ID)
  Receive Date: 20171219
  Receipt Date: 20171219
  Transmission Date: 20180321
  Serious: Yes (Other)
  Sender: FDA-Public Use
  Company Number: ID-OTSUKA-JP-2012-15591

PATIENT
  Age: 14 Year
  Sex: Female

DRUGS (3)
  1. ABILIFY [Suspect]
     Active Substance: ARIPIPRAZOLE
     Indication: DEREALISATION
     Dosage: 6 MG, QD
     Route: 048
     Dates: start: 200905, end: 201206
  2. ABILIFY [Suspect]
     Active Substance: ARIPIPRAZOLE
     Indication: DEPERSONALISATION/DEREALISATION DISORDER
  3. ABILIFY [Suspect]
     Active Substance: ARIPIPRAZOLE
     Indication: HALLUCINATION

REACTIONS (2)
  - Myopia [Unknown]
  - Open angle glaucoma [Unknown]

NARRATIVE: CASE EVENT DATE: 20120606
